FAERS Safety Report 24136906 (Version 1)
Quarter: 2024Q3

REPORT INFORMATION
  Report Type: Spontaneous
  Country: CN (occurrence: CN)
  Receive Date: 20240725
  Receipt Date: 20240725
  Transmission Date: 20241016
  Serious: Yes (Hospitalization, Disabling, Other)
  Sender: BAYER
  Company Number: CN-BAYER-2024A106694

PATIENT
  Age: 57 Year
  Sex: Male
  Weight: 70 kg

DRUGS (1)
  1. ULTRAVIST [Suspect]
     Active Substance: IOPROMIDE
     Indication: Angiocardiogram
     Dosage: 40 ML, ONCE
     Route: 042
     Dates: start: 20240712, end: 20240712

REACTIONS (6)
  - Contrast encephalopathy [Recovering/Resolving]
  - Slow response to stimuli [Recovering/Resolving]
  - Visual field defect [Recovering/Resolving]
  - Vision blurred [Recovering/Resolving]
  - Depressed level of consciousness [Recovering/Resolving]
  - Indifference [Recovering/Resolving]

NARRATIVE: CASE EVENT DATE: 20240712
